FAERS Safety Report 4492122-4 (Version None)
Quarter: 2004Q3

REPORT INFORMATION
  Report Type: 
  Country: None (occurrence: None)
  Receive Date: 20040924
  Receipt Date: 20031106
  Transmission Date: 20050211
  Serious: No
  Sender: FDA-Public Use
  Company Number: 03P-163-0240386-00

PATIENT
  Age: 21 Year
  Sex: Male

DRUGS (5)
  1. KALETRA [Suspect]
     Indication: HIV INFECTION
  2. NORVIR [Suspect]
     Indication: HIV INFECTION
     Dosage: 100 MG, 1 IN 1 D, PER ORAL
     Route: 048
  3. ATAZANAVIR [Suspect]
     Indication: HIV INFECTION
     Dosage: 200 MG, 1 IN 1 D, PER ORAL
     Route: 048
  4. VIREAD [Suspect]
     Indication: HIV INFECTION
     Dosage: 300 MG, 1 IN 1 D, PER ORAL
     Route: 048
  5. EMTRICITABINE [Suspect]
     Indication: HIV INFECTION
     Dosage: 200 MG, 1 IN 1 D, PER ORAL
     Route: 048

REACTIONS (2)
  - DIARRHOEA [None]
  - OCULAR ICTERUS [None]
